FAERS Safety Report 7775811-5 (Version None)
Quarter: 2011Q3

REPORT INFORMATION
  Report Type: 
  Country: None (occurrence: None)
  Receive Date: 20110923
  Receipt Date: 20110914
  Transmission Date: 20111222
  Serious: Yes (Other)
  Sender: FDA-Public Use
  Company Number: US-UCBSA-040767

PATIENT
  Age: 60 Year
  Sex: Female

DRUGS (1)
  1. NITROGLYCERIN [Suspect]
     Dosage: BOLUS OF 150 MCG REPEATED THREE TIMES
     Route: 022

REACTIONS (1)
  - HYPERTENSION [None]
